FAERS Safety Report 8825109 (Version 2)
Quarter: 2015Q2

REPORT INFORMATION
  Report Type: Report from Study
  Country: US (occurrence: US)
  Receive Date: 20121004
  Receipt Date: 20150624
  Transmission Date: 20150821
  Serious: Yes (Death, Other)
  Sender: FDA-Public Use
  Company Number: US-ROCHE-1131624

PATIENT
  Sex: Female

DRUGS (26)
  1. KEFLEX [Concomitant]
     Active Substance: CEPHALEXIN
  2. FOLIC ACID. [Concomitant]
     Active Substance: FOLIC ACID
     Route: 048
  3. RITUXAN [Suspect]
     Active Substance: RITUXIMAB
     Indication: AUTOIMMUNE HAEMOLYTIC ANAEMIA
  4. SYNTHROID [Concomitant]
     Active Substance: LEVOTHYROXINE SODIUM
     Route: 065
  5. MEGACE [Concomitant]
     Active Substance: MEGESTROL ACETATE
  6. CYCLOSPORIN [Concomitant]
     Active Substance: CYCLOSPORINE
     Route: 065
  7. FAMVIR (UNITED STATES) [Concomitant]
     Route: 065
  8. ATIVAN [Concomitant]
     Active Substance: LORAZEPAM
  9. LASIX [Concomitant]
     Active Substance: FUROSEMIDE
     Route: 048
  10. SOLU-MEDROL [Concomitant]
     Active Substance: METHYLPREDNISOLONE SODIUM SUCCINATE
     Route: 065
  11. DOXEPIN [Concomitant]
     Active Substance: DOXEPIN
     Route: 065
  12. VITAMIN B12 [Concomitant]
     Active Substance: CYANOCOBALAMIN
     Route: 065
  13. RESTASIS [Concomitant]
     Active Substance: CYCLOSPORINE
  14. RITUXAN [Suspect]
     Active Substance: RITUXIMAB
     Indication: OFF LABEL USE
     Route: 042
  15. FORTEO [Concomitant]
     Active Substance: TERIPARATIDE
     Route: 065
  16. ASPIRIN. [Concomitant]
     Active Substance: ASPIRIN
     Route: 065
  17. RITUXAN [Suspect]
     Active Substance: RITUXIMAB
     Indication: SYSTEMIC LUPUS ERYTHEMATOSUS
     Route: 042
  18. ALBUTEROL. [Concomitant]
     Active Substance: ALBUTEROL
     Route: 065
  19. PREVACID [Concomitant]
     Active Substance: LANSOPRAZOLE
     Route: 065
  20. VITAMIN D3 [Concomitant]
     Active Substance: CHOLECALCIFEROL
     Route: 065
  21. RITUXAN [Suspect]
     Active Substance: RITUXIMAB
     Indication: CONNECTIVE TISSUE DISORDER
     Dosage: MAINTAINANCE
     Route: 042
     Dates: start: 20050815
  22. TYLENOL [Concomitant]
     Active Substance: ACETAMINOPHEN
     Route: 048
  23. BENADRYL ALLERGY (UNITED STATES) [Concomitant]
     Route: 042
  24. PLAQUENIL [Concomitant]
     Active Substance: HYDROXYCHLOROQUINE SULFATE
     Route: 048
  25. CYMBALTA [Concomitant]
     Active Substance: DULOXETINE HYDROCHLORIDE
     Route: 048
  26. PREDNISONE. [Concomitant]
     Active Substance: PREDNISONE
     Route: 065

REACTIONS (33)
  - Blood pressure increased [Unknown]
  - Amnesia [Unknown]
  - Dry eye [Unknown]
  - Urinary tract infection [Unknown]
  - Gastrooesophageal reflux disease [Unknown]
  - Neuropathy peripheral [Unknown]
  - Insomnia [Unknown]
  - Cough [Unknown]
  - Haemorrhage [Unknown]
  - Palpitations [Unknown]
  - Pain [Unknown]
  - Pneumonia [Unknown]
  - Nausea [Unknown]
  - Malaise [Unknown]
  - Asthenia [Unknown]
  - Swelling [Unknown]
  - Arthritis [Unknown]
  - Dyspepsia [Unknown]
  - Alopecia [Unknown]
  - Hot flush [Unknown]
  - Lymphadenopathy [Unknown]
  - Constipation [Unknown]
  - Back pain [Unknown]
  - Cold sweat [Unknown]
  - Fatigue [Unknown]
  - Pyrexia [Unknown]
  - Musculoskeletal stiffness [Unknown]
  - Arthralgia [Unknown]
  - Death [Fatal]
  - Systemic lupus erythematosus [Unknown]
  - Dizziness [Unknown]
  - Rash [Unknown]
  - Oedema peripheral [Unknown]
